FAERS Safety Report 25058801 (Version 2)
Quarter: 2025Q4

REPORT INFORMATION
  Report Type: Spontaneous
  Country: EU (occurrence: EU)
  Receive Date: 20250310
  Receipt Date: 20251224
  Transmission Date: 20260118
  Serious: Yes (Other)
  Sender: AUROBINDO
  Company Number: EU-LRB-01037813

PATIENT
  Age: 81 Year
  Sex: Female
  Weight: 69 kg

DRUGS (2)
  1. ACETAMINOPHEN [Suspect]
     Active Substance: ACETAMINOPHEN
     Indication: Pain
     Dosage: 1 DOSAGE FORM, EVERY FOUR HOUR [5 X PER 24 UUR 2 STUKS]
     Route: 065
     Dates: start: 20250206, end: 20250209
  2. FLUCLOXACILLIN [Suspect]
     Active Substance: FLUCLOXACILLIN
     Indication: Antibiotic prophylaxis
     Dosage: 500 MILLIGRAM, FOUR TIMES/DAY [4 X PER DAG 1 STUK]
     Route: 061
     Dates: start: 20250205

REACTIONS (3)
  - Melaena [Recovered/Resolved]
  - Nausea [Recovered/Resolved]
  - Abdominal pain upper [Recovered/Resolved]
